FAERS Safety Report 12492099 (Version 1)
Quarter: 2016Q2

REPORT INFORMATION
  Report Type: Spontaneous
  Country: AT (occurrence: AT)
  Receive Date: 20160623
  Receipt Date: 20160623
  Transmission Date: 20160815
  Serious: Yes (Other)
  Sender: FDA-Public Use
  Company Number: PHHY2016AT085545

PATIENT
  Age: 51 Year
  Sex: Male

DRUGS (1)
  1. VOLTAREN [Suspect]
     Active Substance: DICLOFENAC SODIUM
     Indication: BACK PAIN
     Dosage: 25 MG, UNK
     Route: 065
     Dates: start: 20160205, end: 20160205

REACTIONS (4)
  - Respiratory distress [Unknown]
  - Generalised erythema [Unknown]
  - Nausea [Unknown]
  - Pruritus generalised [Unknown]
